FAERS Safety Report 8373576-X (Version None)
Quarter: 2012Q2

REPORT INFORMATION
  Report Type: 
  Country: None (occurrence: None)
  Receive Date: 20120521
  Receipt Date: 20110823
  Transmission Date: 20120825
  Serious: No
  Sender: FDA-Public Use
  Company Number: US-TEVA-2011004440

PATIENT
  Age: 67 Year
  Sex: Female

DRUGS (1)
  1. TREANDA [Suspect]
     Route: 042

REACTIONS (2)
  - CHEST DISCOMFORT [None]
  - MALAISE [None]
